FAERS Safety Report 7292997-X (Version None)
Quarter: 2011Q1

REPORT INFORMATION
  Report Type: 
  Country: None (occurrence: None)
  Receive Date: 20110215
  Receipt Date: 20110204
  Transmission Date: 20110831
  Serious: Yes (Hospitalization)
  Sender: FDA-Public Use
  Company Number: US-BAXTER-2011BH001598

PATIENT
  Age: 75 Year
  Sex: Male
  Weight: 78 kg

DRUGS (4)
  1. BLOOD PRESSURE MEDICATION [Concomitant]
     Indication: HYPERTENSION
     Route: 065
     Dates: end: 20110101
  2. DIANEAL [Suspect]
     Route: 033
     Dates: start: 20060101, end: 20110101
  3. DIANEAL [Suspect]
     Indication: PERITONEAL DIALYSIS
     Route: 033
     Dates: start: 20110101, end: 20110103
  4. EXTRANEAL [Suspect]
     Indication: PERITONEAL DIALYSIS
     Route: 033
     Dates: start: 20091125, end: 20110101

REACTIONS (4)
  - BLOOD PRESSURE DECREASED [None]
  - DIALYSIS [None]
  - WEIGHT DECREASED [None]
  - DEHYDRATION [None]
